FAERS Safety Report 5863877-9 (Version None)
Quarter: 2008Q3

REPORT INFORMATION
  Report Type: 
  Country: None (occurrence: None)
  Receive Date: 20080827
  Receipt Date: 20080811
  Transmission Date: 20090109
  Serious: Yes (Life-Threatening, Other)
  Sender: FDA-Public Use
  Company Number: PAR_02306_2008

PATIENT
  Age: 77 Year
  Sex: Female

DRUGS (3)
  1. ALLOPURINOL [Suspect]
     Indication: TUMOUR LYSIS SYNDROME
     Dosage: (DF)
  2. ANTIBIOTICS (ANTIBIOTICS) [Suspect]
     Indication: FEBRILE NEUTROPENIA
     Dosage: (DF)
  3. ANTIFUNGALS (ANTIFUNGAL AGENTS) [Suspect]
     Indication: FEBRILE NEUTROPENIA
     Dosage: (DF)

REACTIONS (6)
  - DRUG RASH WITH EOSINOPHILIA AND SYSTEMIC SYMPTOMS [None]
  - FEBRILE NEUTROPENIA [None]
  - HUMAN HERPESVIRUS 6 INFECTION [None]
  - HYPOGAMMAGLOBULINAEMIA [None]
  - LIVER DISORDER [None]
  - VIRAEMIA [None]
